FAERS Safety Report 4872944-8 (Version None)
Quarter: 2006Q1

REPORT INFORMATION
  Report Type: 
  Country: None (occurrence: None)
  Receive Date: 20060105
  Receipt Date: 20050330
  Transmission Date: 20060701
  Serious: Yes (Death)
  Sender: FDA-Public Use
  Company Number: US-BRISTOL-MYERS SQUIBB COMPANY-12917183

PATIENT
  Sex: Male

DRUGS (1)
  1. SERZONE [Suspect]
     Dates: end: 19960101

REACTIONS (9)
  - ANXIETY [None]
  - COMPLETED SUICIDE [None]
  - DEPRESSION [None]
  - DIZZINESS [None]
  - HEPATIC ENZYME INCREASED [None]
  - INSOMNIA [None]
  - MENTAL STATUS CHANGES [None]
  - MYALGIA [None]
  - PAIN [None]
